FAERS Safety Report 4469701-3 (Version None)
Quarter: 2004Q3

REPORT INFORMATION
  Report Type: 
  Country: None (occurrence: None)
  Receive Date: 20040917
  Receipt Date: 20040331
  Transmission Date: 20050211
  Serious: Yes (Hospitalization)
  Sender: FDA-Public Use
  Company Number: 2004-BP-02634BP(0)

PATIENT
  Sex: Male

DRUGS (10)
  1. VIRAMUNE [Suspect]
     Indication: HIV INFECTION
     Dosage: SEE IMAGE
     Route: 048
     Dates: start: 20040228, end: 20040312
  2. VIRAMUNE [Suspect]
     Indication: HIV INFECTION
     Dosage: SEE IMAGE
     Route: 048
     Dates: start: 20040312, end: 20040327
  3. COMBIVIR [Concomitant]
  4. DIFLUCAN [Concomitant]
  5. ALBUTEROL [Concomitant]
  6. BACTRIM DS [Concomitant]
  7. KLONOPIN (CLONZEPAM) [Concomitant]
  8. VALTREX [Concomitant]
  9. ZYPREXA [Concomitant]
  10. BENZACLIN (BENZOYL PEROXIDE W/CLINDAMYCIN) [Concomitant]

REACTIONS (5)
  - FACE OEDEMA [None]
  - LIVER FUNCTION TEST ABNORMAL [None]
  - LOCAL SWELLING [None]
  - PYREXIA [None]
  - RASH [None]
